FAERS Safety Report 10688016 (Version 1)
Quarter: 2014Q4

REPORT INFORMATION
  Report Type: Spontaneous
  Country: US (occurrence: None)
  Receive Date: 20141231
  Receipt Date: 20141231
  Transmission Date: 20150529
  Serious: Yes (Hospitalization)
  Sender: FDA-Public Use
  Company Number: None

PATIENT
  Age: 81 Year
  Sex: Male
  Weight: 79 kg

DRUGS (1)
  1. WARFARIN [Suspect]
     Active Substance: WARFARIN
     Indication: ATRIAL FIBRILLATION
     Dosage: 5 MG PM PO
     Route: 048
     Dates: start: 20060710, end: 20141004

REACTIONS (13)
  - Nausea [None]
  - Palpitations [None]
  - Haemoglobin decreased [None]
  - Rectal haemorrhage [None]
  - Gastrointestinal angiodysplasia [None]
  - Orthostatic intolerance [None]
  - Syncope [None]
  - Diarrhoea [None]
  - Condition aggravated [None]
  - Dyspnoea exertional [None]
  - International normalised ratio increased [None]
  - Vomiting [None]
  - Gastric haemorrhage [None]

NARRATIVE: CASE EVENT DATE: 20141002
